FAERS Safety Report 8162878 (Version 2)
Quarter: 2013Q4

REPORT INFORMATION
  Report Type: Spontaneous
  Country: US (occurrence: US)
  Receive Date: 20110930
  Receipt Date: 20131217
  Transmission Date: 20140711
  Serious: Yes (Hospitalization, Other)
  Sender: FDA-Public Use
  Company Number: US-ELI_LILLY_AND_COMPANY-US201109007602

PATIENT
  Sex: Female

DRUGS (4)
  1. HUMULIN 30% REGULAR, 70% NPH [Suspect]
     Indication: DIABETES MELLITUS
     Dosage: UNK, PRN
  2. HUMULIN 30% REGULAR, 70% NPH [Suspect]
     Indication: DIABETES MELLITUS
     Dosage: UNK
     Dates: start: 1991
  3. INSULIN HUMAN [Suspect]
     Indication: DIABETES MELLITUS
     Dosage: 30 U, BID
     Route: 065
  4. LANTUS [Concomitant]
     Dosage: UNK

REACTIONS (18)
  - Loss of consciousness [Recovered/Resolved]
  - Oxygen saturation decreased [Not Recovered/Not Resolved]
  - Heart rate decreased [Unknown]
  - Breast cancer [Unknown]
  - Renal disorder [Unknown]
  - Thrombosis [Unknown]
  - Eye disorder [Unknown]
  - Cataract [Unknown]
  - Weight decreased [Unknown]
  - Dry eye [Unknown]
  - Chest pain [Unknown]
  - Pain [Unknown]
  - Back pain [Unknown]
  - Abdominal discomfort [Unknown]
  - Bladder disorder [Unknown]
  - Arthritis [Unknown]
  - Blood glucose decreased [Unknown]
  - Paraesthesia [Unknown]
